FAERS Safety Report 5788335-1 (Version None)
Quarter: 2008Q2

REPORT INFORMATION
  Report Type: 
  Country: None (occurrence: None)
  Receive Date: 20080620
  Receipt Date: 20080605
  Transmission Date: 20081010
  Serious: Yes (Other)
  Sender: FDA-Public Use
  Company Number: 2008PV035569

PATIENT
  Age: 43 Year
  Sex: Female
  Weight: 62.5964 kg

DRUGS (4)
  1. SYMLIN [Suspect]
     Indication: TYPE 1 DIABETES MELLITUS
     Dosage: 15 MCG; BID; SC
     Route: 058
     Dates: start: 20080201
  2. HUMALOG [Concomitant]
  3. LANTUS [Concomitant]
  4. INSULIN 75/25 [Concomitant]

REACTIONS (5)
  - DRUG PRESCRIBING ERROR [None]
  - HYPOGLYCAEMIA UNAWARENESS [None]
  - HYPOGLYCAEMIC UNCONSCIOUSNESS [None]
  - ILL-DEFINED DISORDER [None]
  - INAPPROPRIATE SCHEDULE OF DRUG ADMINISTRATION [None]
